FAERS Safety Report 17576570 (Version 1)
Quarter: 2020Q1

REPORT INFORMATION
  Report Type: Spontaneous
  Country: US (occurrence: US)
  Receive Date: 20200319
  Receipt Date: 20200319
  Transmission Date: 20200409
  Serious: No
  Sender: FDA-Public Use
  Company Number: None

PATIENT
  Age: 31 Year
  Sex: Male

DRUGS (1)
  1. SPRYCEL [Suspect]
     Active Substance: DASATINIB
     Indication: CHRONIC MYELOID LEUKAEMIA
     Route: 048
     Dates: start: 202001

REACTIONS (5)
  - Vomiting [None]
  - Impaired work ability [None]
  - Nausea [None]
  - Decreased appetite [None]
  - Gastrointestinal disorder [None]

NARRATIVE: CASE EVENT DATE: 20200316
